FAERS Safety Report 13226981 (Version 1)
Quarter: 2017Q1

REPORT INFORMATION
  Report Type: Spontaneous
  Country: AR (occurrence: AR)
  Receive Date: 20170213
  Receipt Date: 20170213
  Transmission Date: 20170428
  Serious: Yes (Hospitalization)
  Sender: FDA-Public Use
  Company Number: AR-BIOMARINAP-AR-2017-112804

PATIENT
  Age: 25 Month
  Sex: Male

DRUGS (1)
  1. ALDURAZYME [Suspect]
     Active Substance: LARONIDASE
     Indication: MUCOPOLYSACCHARIDOSIS I
     Dosage: 1000 UNITS, QW
     Route: 041
     Dates: start: 2016

REACTIONS (1)
  - Abdominal abscess [Recovering/Resolving]

NARRATIVE: CASE EVENT DATE: 20170201
